FAERS Safety Report 10647534 (Version 1)
Quarter: 2014Q4

REPORT INFORMATION
  Report Type: Spontaneous
  Country: IT (occurrence: IT)
  Receive Date: 20141211
  Receipt Date: 20141211
  Transmission Date: 20150529
  Serious: Yes (Hospitalization)
  Sender: FDA-Public Use
  Company Number: IT-TEVA-527052ISR

PATIENT
  Age: 67 Year
  Sex: Male

DRUGS (7)
  1. ASPIRIN. [Concomitant]
     Active Substance: ASPIRIN
     Route: 048
  2. SINVACOR 20 MG [Concomitant]
     Route: 048
  3. COMBISARTAN 80 MG/12.5 MG [Concomitant]
     Route: 048
  4. KCL RETARD 600 MG [Concomitant]
     Route: 048
  5. OMEPRAZOLO [Concomitant]
     Active Substance: OMEPRAZOLE
     Route: 048
  6. CARBOLITHIUM 300 MG [Suspect]
     Active Substance: LITHIUM CARBONATE
     Indication: MENTAL DISORDER
     Dosage: 900 MILLIGRAM DAILY;
     Route: 048
  7. NORVASC 5 MG [Concomitant]
     Route: 048

REACTIONS (4)
  - Gait disturbance [Recovering/Resolving]
  - Tremor [Recovering/Resolving]
  - Overdose [Recovering/Resolving]
  - Balance disorder [Recovering/Resolving]

NARRATIVE: CASE EVENT DATE: 20141109
